FAERS Safety Report 4824504-2 (Version None)
Quarter: 2005Q4

REPORT INFORMATION
  Report Type: 
  Country: None (occurrence: None)
  Receive Date: 20051110
  Receipt Date: 20051031
  Transmission Date: 20060501
  Serious: Yes (Hospitalization)
  Sender: FDA-Public Use
  Company Number: PT-BOEHRINGER INGELHEIM PHARMACEUTICALS, INC.-2005-DE-04530GD

PATIENT
  Age: 3 Year
  Sex: Female

DRUGS (14)
  1. SALBUTAMOL [Suspect]
     Indication: RESPIRATORY FAILURE
     Dates: start: 20020301
  2. SALBUTAMOL [Suspect]
     Route: 055
     Dates: start: 20020301
  3. SALBUTAMOL [Suspect]
     Dosage: MAXIMUM 0.4 MCG/KG/M
     Route: 042
  4. IPRATROPIUM BROMIDE [Suspect]
     Indication: RESPIRATORY FAILURE
     Dates: start: 20020301
  5. IPRATROPIUM BROMIDE [Suspect]
     Route: 055
     Dates: start: 20020301
  6. HYDROCORTISONE [Suspect]
     Indication: RESPIRATORY FAILURE
     Dates: start: 20020301
  7. ACETYLCYSTEINE [Suspect]
     Indication: PNEUMONITIS
  8. CLARITHROMYCIN [Suspect]
     Indication: RESPIRATORY FAILURE
  9. AMINOPHYLLINE [Suspect]
     Indication: RESPIRATORY FAILURE
     Dates: start: 20020301
  10. AMINOPHYLLINE [Suspect]
     Route: 042
     Dates: start: 20020301
  11. AMOXICILLIN [Suspect]
     Indication: RESPIRATORY FAILURE
     Dates: start: 20020301
  12. CLAVULANIC ACID [Suspect]
     Indication: RESPIRATORY FAILURE
     Dates: start: 20020301
  13. PREDNISOLONE [Suspect]
     Indication: RESPIRATORY FAILURE
     Route: 042
     Dates: start: 20020301
  14. CEFOTAXIME [Suspect]
     Indication: RESPIRATORY FAILURE
     Route: 042
     Dates: start: 20020301

REACTIONS (10)
  - ANAEMIA [None]
  - BRONCHIECTASIS [None]
  - DECREASED ACTIVITY [None]
  - DRUG INEFFECTIVE [None]
  - PNEUMONITIS [None]
  - PULMONARY HYPERTENSION [None]
  - RESPIRATORY ACIDOSIS [None]
  - RESPIRATORY FAILURE [None]
  - THERAPY NON-RESPONDER [None]
  - TRICUSPID VALVE INCOMPETENCE [None]
